FAERS Safety Report 9789172 (Version 3)
Quarter: 2014Q1

REPORT INFORMATION
  Report Type: Spontaneous
  Country: US (occurrence: US)
  Receive Date: 20131230
  Receipt Date: 20140228
  Transmission Date: 20141002
  Serious: No
  Sender: FDA-Public Use
  Company Number: US-GILEAD-2013-0091007

PATIENT
  Sex: Female

DRUGS (5)
  1. LETAIRIS [Suspect]
     Indication: PULMONARY HYPERTENSION
     Dosage: 10 MG, QD
     Route: 065
     Dates: start: 20100318
  2. LETAIRIS [Suspect]
     Indication: SARCOIDOSIS
  3. TYVASO [Concomitant]
  4. ADCIRCA [Concomitant]
  5. COUMADIN                           /00014802/ [Concomitant]

REACTIONS (1)
  - Nausea [Not Recovered/Not Resolved]
